FAERS Safety Report 6300417-4 (Version None)
Quarter: 2009Q3

REPORT INFORMATION
  Report Type: 
  Country: None (occurrence: None)
  Receive Date: 20090806
  Receipt Date: 20080915
  Transmission Date: 20100115
  Serious: No
  Sender: FDA-Public Use
  Company Number: US-ABBOTT-08P-163-0476302-00

PATIENT
  Sex: Female
  Weight: 90.8 kg

DRUGS (5)
  1. DEPAKOTE ER [Suspect]
     Indication: BIPOLAR DISORDER
     Route: 048
     Dates: start: 20080507, end: 20080521
  2. DEPAKOTE ER [Suspect]
     Indication: AFFECTIVE DISORDER
     Route: 048
     Dates: start: 20080521, end: 20080904
  3. DEPAKOTE ER [Suspect]
     Route: 048
     Dates: start: 20080904
  4. ESCITALOPRAM OXALATE [Concomitant]
     Indication: BIPOLAR DISORDER
     Route: 048
     Dates: start: 20070901, end: 20080901
  5. ESCITALOPRAM OXALATE [Concomitant]
     Indication: AFFECTIVE DISORDER
     Route: 048
     Dates: start: 20080901

REACTIONS (3)
  - ALOPECIA [None]
  - DYSPEPSIA [None]
  - NAUSEA [None]
